FAERS Safety Report 6843459-2 (Version None)
Quarter: 2010Q3

REPORT INFORMATION
  Report Type: 
  Country: None (occurrence: None)
  Receive Date: 20100715
  Receipt Date: 20100715
  Transmission Date: 20110219
  Serious: Yes (Death)
  Sender: FDA-Public Use
  Company Number: JP-JNJFOC-20100701584

PATIENT
  Sex: Female

DRUGS (24)
  1. FINIBAX [Suspect]
     Indication: PRODUCT USED FOR UNKNOWN INDICATION
     Route: 041
  2. AMBISOME [Suspect]
     Indication: PNEUMONIA
     Dosage: 100 MG
     Route: 041
  3. AMBISOME [Suspect]
     Dosage: 75 MG
     Route: 041
  4. ZOSYN [Suspect]
     Indication: PRODUCT USED FOR UNKNOWN INDICATION
     Route: 041
  5. TARGOCID [Suspect]
     Indication: PRODUCT USED FOR UNKNOWN INDICATION
     Route: 041
  6. ASPARTATE POTASSIUM [Concomitant]
  7. NEO-MINOPHAGEN C [Concomitant]
  8. DORMICUM [Concomitant]
  9. PHENOBARBITAL TAB [Concomitant]
  10. MYSTAN [Concomitant]
  11. VALPROATE SODIUM [Concomitant]
  12. MEILAX [Concomitant]
  13. MUCODYNE [Concomitant]
  14. MUCOSOLVAN [Concomitant]
  15. ONON [Concomitant]
  16. SODIUM BROMIDE [Concomitant]
  17. CATAPRES [Concomitant]
  18. GABAPEN [Concomitant]
  19. TANNALBIN [Concomitant]
  20. ERYTHROCIN W [Concomitant]
  21. BIOFERMIN R [Concomitant]
  22. ADSORBIN [Concomitant]
  23. PULMICORT RESPULES [Concomitant]
     Route: 055
  24. COTRIM [Concomitant]

REACTIONS (1)
  - PANCREATITIS ACUTE [None]
